FAERS Safety Report 7357585-5 (Version None)
Quarter: 2011Q1

REPORT INFORMATION
  Report Type: 
  Country: None (occurrence: None)
  Receive Date: 20110307
  Receipt Date: 20101102
  Transmission Date: 20110831
  Serious: No
  Sender: FDA-Public Use
  Company Number: AEUSA201000408

PATIENT
  Sex: Male

DRUGS (1)
  1. PROLASTIN-C [Suspect]
     Indication: PRODUCT USED FOR UNKNOWN INDICATION
     Dosage: 120 MG/KG;QOW;IV
     Route: 042

REACTIONS (1)
  - DRUG EFFECT DECREASED [None]
